FAERS Safety Report 5007553-3 (Version None)
Quarter: 2006Q2

REPORT INFORMATION
  Report Type: 
  Country: None (occurrence: None)
  Receive Date: 20060518
  Receipt Date: 20060505
  Transmission Date: 20061013
  Serious: Yes (Hospitalization)
  Sender: FDA-Public Use
  Company Number: 2006053819

PATIENT
  Age: 68 Year
  Sex: Male
  Weight: 61.8 kg

DRUGS (16)
  1. SUTENT [Suspect]
     Indication: METASTATIC RENAL CELL CARCINOMA
     Dosage: 50 MG (50 MG, 1 IN 1 D), ORAL
     Route: 048
     Dates: start: 20060410, end: 20060418
  2. UBIDECARENONE (UBIDECARENONE) [Concomitant]
  3. CHONDROITIN SULFATE (CHONDROITIN SULFATE) [Concomitant]
  4. SUPRAVITE C (ASCORBIC ACID, IRON, VITAMIN B NOS) [Concomitant]
  5. SPIRULINA (SPIRULINA) [Concomitant]
  6. IBERET-FOLIC-500 (ASCORBIC ACID, CALCIUM PANTOTHENATE, FERROUS SULFATE [Concomitant]
  7. MULTIVITAMIN [Concomitant]
  8. MORPHINE [Concomitant]
  9. CELEBREX [Concomitant]
  10. ATENOLOL [Concomitant]
  11. TOLTERODINE TARTRATE [Concomitant]
  12. LOSARTAN POTASSIUM [Concomitant]
  13. RANITIDINE [Concomitant]
  14. ERYTHROPOIETIN (ERYTHROPOIETIN) [Concomitant]
  15. TRAMADOL HCL [Concomitant]
  16. LACTULOSE [Concomitant]

REACTIONS (8)
  - BLADDER DILATATION [None]
  - NAUSEA [None]
  - NEUROGENIC BLADDER [None]
  - PROSTATE EXAMINATION ABNORMAL [None]
  - RENAL FAILURE ACUTE [None]
  - SPINAL CORD COMPRESSION [None]
  - URINARY RETENTION [None]
  - VOMITING [None]
